FAERS Safety Report 11341068 (Version 1)
Quarter: 2015Q3

REPORT INFORMATION
  Report Type: Spontaneous
  Country: US (occurrence: None)
  Receive Date: 20150803
  Receipt Date: 20150803
  Transmission Date: 20151125
  Serious: No
  Sender: FDA-Public Use
  Company Number: None

PATIENT
  Age: 54 Year
  Sex: Female
  Weight: 68.04 kg

DRUGS (7)
  1. BUPROPION HCL [Suspect]
     Active Substance: BUPROPION HYDROCHLORIDE
     Indication: DEPRESSION
     Route: 048
  2. MEDROXYPROGESTERONE [Concomitant]
     Active Substance: MEDROXYPROGESTERONE
  3. DULOXETINE. [Concomitant]
     Active Substance: DULOXETINE
  4. ESTRADIOL. [Concomitant]
     Active Substance: ESTRADIOL
  5. MULTIVITAMIN [Concomitant]
     Active Substance: VITAMINS
  6. RISPERDONE [Concomitant]
     Active Substance: RISPERIDONE
  7. AMATRYPTALINE [Concomitant]

REACTIONS (4)
  - Drug ineffective [None]
  - Activities of daily living impaired [None]
  - Product substitution issue [None]
  - Product quality issue [None]
